FAERS Safety Report 14689339 (Version 1)
Quarter: 2018Q1

REPORT INFORMATION
  Report Type: Report from Study
  Country: None (occurrence: TW)
  Receive Date: 20180328
  Receipt Date: 20180328
  Transmission Date: 20180509
  Serious: Yes (Hospitalization)
  Sender: FDA-Public Use
  Company Number: TW-ABBVIE-18K-153-2252156-00

PATIENT
  Age: 31 Year
  Sex: Male
  Weight: 83 kg

DRUGS (2)
  1. METHOTREXATE. [Concomitant]
     Active Substance: METHOTREXATE
     Indication: PSORIASIS
     Dosage: 10-15 MG
     Route: 048
     Dates: start: 20160516, end: 20180129
  2. HUMIRA [Suspect]
     Active Substance: ADALIMUMAB
     Indication: PSORIASIS
     Route: 058
     Dates: start: 20170502, end: 20180123

REACTIONS (9)
  - Panniculitis lobular [Unknown]
  - Septal panniculitis [Unknown]
  - Granuloma [Not Recovered/Not Resolved]
  - Erythema [Unknown]
  - Erythema nodosum [Not Recovered/Not Resolved]
  - Peripheral swelling [Unknown]
  - Contusion [Unknown]
  - Mycobacterial infection [Unknown]
  - Erythema [Unknown]

NARRATIVE: CASE EVENT DATE: 201801
